FAERS Safety Report 8968681 (Version 1)
Quarter: 2012Q4

REPORT INFORMATION
  Report Type: 
  Country: BR (occurrence: BR)
  Receive Date: 20121218
  Receipt Date: 20121218
  Transmission Date: 20130627
  Serious: Yes (Other)
  Sender: FDA-Public Use
  Company Number: BR-PFIZER INC-2012314345

PATIENT
  Sex: Female

DRUGS (1)
  1. GENOTROPIN [Suspect]

REACTIONS (3)
  - Polyarthritis [Unknown]
  - Myalgia [Unknown]
  - Paraesthesia [Unknown]
